FAERS Safety Report 12759322 (Version 1)
Quarter: 2016Q3

REPORT INFORMATION
  Report Type: Report from Study
  Country: PL (occurrence: PL)
  Receive Date: 20160919
  Receipt Date: 20160919
  Transmission Date: 20161109
  Serious: Yes (Other)
  Sender: FDA-Public Use
  Company Number: PL-TEVA-691711ISR

PATIENT

DRUGS (1)
  1. TORASEMIDE [Suspect]
     Active Substance: TORSEMIDE

REACTIONS (5)
  - Pemphigoid [Recovered/Resolved]
  - Immunoglobulins abnormal [Recovered/Resolved]
  - Eosinophilia [Recovered/Resolved]
  - Gamma-glutamyltransferase abnormal [Recovered/Resolved]
  - Neutrophilia [Recovered/Resolved]
